FAERS Safety Report 8145943-0 (Version None)
Quarter: 2012Q1

REPORT INFORMATION
  Report Type: 
  Country: None (occurrence: None)
  Receive Date: 20120217
  Receipt Date: 20110630
  Transmission Date: 20120608
  Serious: No
  Sender: FDA-Public Use
  Company Number: US-ABBOTT-11P-163-0835401-00

PATIENT
  Sex: Male
  Weight: 99.426 kg

DRUGS (5)
  1. LYRICA [Concomitant]
     Indication: PRODUCT USED FOR UNKNOWN INDICATION
  2. LIDODERM [Concomitant]
     Indication: PRODUCT USED FOR UNKNOWN INDICATION
     Dosage: PATCH AS REQUIRED
  3. SIMCOR [Suspect]
     Indication: ILL-DEFINED DISORDER
     Dosage: 1000MG/20MG X 2 TABLETS AT BEDTIME
     Dates: start: 20100101
  4. LOVESA [Concomitant]
     Indication: PRODUCT USED FOR UNKNOWN INDICATION
  5. LISINOPRIL [Concomitant]
     Indication: PRODUCT USED FOR UNKNOWN INDICATION

REACTIONS (4)
  - PRURITUS [None]
  - FLUSHING [None]
  - FEELING HOT [None]
  - PARAESTHESIA [None]
